FAERS Safety Report 4402391-4 (Version None)
Quarter: 2004Q3

REPORT INFORMATION
  Report Type: 
  Country: None (occurrence: None)
  Receive Date: 20040713
  Receipt Date: 20040624
  Transmission Date: 20050211
  Serious: Yes (Other)
  Sender: FDA-Public Use
  Company Number: A04-019

PATIENT
  Sex: Female

DRUGS (2)
  1. RX MIXTURE STRENGTH #4 OF MITE AND CAT [Suspect]
     Dosage: 0.05 ML SUB CU
     Route: 058
  2. RX MIXTURE STRENGTH #4 OF MITE AND CAT [Suspect]

REACTIONS (3)
  - PRURITUS [None]
  - THROAT IRRITATION [None]
  - WHEEZING [None]
